FAERS Safety Report 18429420 (Version 1)
Quarter: 2020Q4

REPORT INFORMATION
  Report Type: Report from Study
  Country: CA (occurrence: CA)
  Receive Date: 20201027
  Receipt Date: 20201027
  Transmission Date: 20210114
  Serious: Yes (Death)
  Sender: FDA-Public Use
  Company Number: CA-BEH-2020123990

PATIENT
  Sex: Female

DRUGS (5)
  1. POMALYST [Concomitant]
     Active Substance: POMALIDOMIDE
     Dosage: 8 MILLIGRAM, TAKE ON DAY 1, 8, AND 15
     Route: 065
  2. HIZENTRA [Suspect]
     Active Substance: HUMAN IMMUNOGLOBULIN G
     Indication: SECONDARY IMMUNODEFICIENCY
     Dosage: 10 GRAM, QW
     Route: 058
     Dates: start: 20191104
  3. PROCYTOX [Concomitant]
     Active Substance: CYCLOPHOSPHAMIDE
     Dosage: 8 MILLIGRAM, TAKE ON DAY 1, 8, AND 15
  4. HIZENTRA [Suspect]
     Active Substance: HUMAN IMMUNOGLOBULIN G
     Indication: PLASMA CELL MYELOMA
  5. TEVA FUROSEMIDE [Concomitant]
     Active Substance: FUROSEMIDE
     Dosage: 10 MILLIGRAM, TAKE DAY 1, 8, AND 15
     Route: 065

REACTIONS (1)
  - Death [Fatal]

NARRATIVE: CASE EVENT DATE: 2020
